FAERS Safety Report 4383183-1 (Version None)
Quarter: 2004Q2

REPORT INFORMATION
  Report Type: 
  Country: None (occurrence: None)
  Receive Date: 20040623
  Receipt Date: 20040615
  Transmission Date: 20050107
  Serious: Yes (Other)
  Sender: FDA-Public Use
  Company Number: PHNU2004DE02134

PATIENT
  Age: 43 Year
  Sex: Male

DRUGS (2)
  1. SANDOSTATIN [Suspect]
     Indication: ACROMEGALY
     Dosage: 300-500 UG/D
     Route: 058
     Dates: start: 19950101
  2. BETA BLOCKING AGENTS [Concomitant]
     Dates: start: 20010101

REACTIONS (4)
  - ATRIAL FIBRILLATION [None]
  - CHOLELITHIASIS [None]
  - CONDITION AGGRAVATED [None]
  - VENTRICULAR EXTRASYSTOLES [None]
